FAERS Safety Report 9058937 (Version 1)
Quarter: 2013Q1

REPORT INFORMATION
  Report Type: Spontaneous
  Country: US (occurrence: US)
  Receive Date: 20130211
  Receipt Date: 20130211
  Transmission Date: 20140127
  Serious: No
  Sender: FDA-Public Use
  Company Number: US-BRISTOL-MYERS SQUIBB COMPANY-16402802

PATIENT
  Age: 68 Year
  Sex: Male
  Weight: 102 kg

DRUGS (4)
  1. METFORMIN HCL [Suspect]
     Dosage: STARTED WITH 500MG
     Route: 048
  2. GLIPIZIDE [Suspect]
  3. ACTOSE [Suspect]
  4. JANUVIA [Suspect]

REACTIONS (6)
  - Weight increased [Recovering/Resolving]
  - Myalgia [Recovered/Resolved]
  - Fatigue [Unknown]
  - Blood pressure abnormal [Unknown]
  - Blood glucose abnormal [Unknown]
  - Sleep disorder [Unknown]
